FAERS Safety Report 19915755 (Version 1)
Quarter: 2021Q4

REPORT INFORMATION
  Report Type: Spontaneous
  Country: US (occurrence: US)
  Receive Date: 20211004
  Receipt Date: 20211004
  Transmission Date: 20220303
  Serious: Yes (Hospitalization)
  Sender: FDA-Public Use
  Company Number: None

PATIENT
  Sex: Male
  Weight: 90.9 kg

DRUGS (4)
  1. SPRYCEL [Suspect]
     Active Substance: DASATINIB
     Indication: Acute lymphocytic leukaemia
     Dosage: ?          OTHER FREQUENCY:2WON, 1WOFF;
     Route: 048
  2. NAPROXEN [Concomitant]
     Active Substance: NAPROXEN
  3. PREDNISONE [Concomitant]
     Active Substance: PREDNISONE
  4. ALLOPURINOL [Concomitant]
     Active Substance: ALLOPURINOL

REACTIONS (1)
  - Hospitalisation [None]
